FAERS Safety Report 19223624 (Version 3)
Quarter: 2021Q2

REPORT INFORMATION
  Report Type: Report from Study
  Country: US (occurrence: US)
  Receive Date: 20210506
  Receipt Date: 20210520
  Transmission Date: 20210717
  Serious: Yes (Other)
  Sender: FDA-Public Use
  Company Number: NVSC2021US102240

PATIENT
  Sex: Female

DRUGS (3)
  1. DIGOXIN. [Concomitant]
     Active Substance: DIGOXIN
     Indication: PRODUCT USED FOR UNKNOWN INDICATION
     Dosage: UNK UNK, UNKNOWN
     Route: 065
  2. ENTRESTO [Suspect]
     Active Substance: SACUBITRIL\VALSARTAN
     Indication: PRODUCT USED FOR UNKNOWN INDICATION
     Dosage: UNK
     Route: 065
  3. PROTONIX [Concomitant]
     Active Substance: PANTOPRAZOLE SODIUM
     Indication: GASTROOESOPHAGEAL REFLUX DISEASE
     Dosage: UNK UNK, UNKNOWN
     Route: 065

REACTIONS (9)
  - Insomnia [Unknown]
  - Cough [Unknown]
  - Hypotension [Unknown]
  - Decreased appetite [Unknown]
  - Dysgeusia [Unknown]
  - Productive cough [Unknown]
  - Balance disorder [Unknown]
  - Choking [Unknown]
  - Pollakiuria [Unknown]
